FAERS Safety Report 9597728 (Version 1)
Quarter: 2013Q4

REPORT INFORMATION
  Report Type: Spontaneous
  Country: US (occurrence: US)
  Receive Date: 20131004
  Receipt Date: 20131004
  Transmission Date: 20140711
  Serious: No
  Sender: FDA-Public Use
  Company Number: US-AMGEN-USASP2013020165

PATIENT
  Age: 55 Year
  Sex: Female
  Weight: 97 kg

DRUGS (11)
  1. ENBREL [Suspect]
     Indication: RHEUMATOID ARTHRITIS
     Dosage: 50 MG, QWK
     Route: 058
  2. METHOTREXATE [Concomitant]
     Dosage: 2.5 MG, UNK
  3. METOPROL ZOK MEPHA [Concomitant]
     Dosage: 100 MG, UNK
  4. PAROXETINE [Concomitant]
     Dosage: 10 MG, UNK
  5. FOLIC ACID [Concomitant]
     Dosage: 1 MG, UNK
  6. TRIAMTEREEN/HYDROCHLOORTHIAZIDE A [Concomitant]
     Dosage: 37.5-25 UNK, UNK
  7. ASA [Concomitant]
     Dosage: 81 MG,EC
  8. VIT D [Concomitant]
     Dosage: 400 UNIT, UNK
  9. IRON [Concomitant]
     Dosage: 325 MG, UNK
  10. ATORVASTATIN [Concomitant]
     Dosage: 40 MG, UNK
  11. TYLENOL                            /00020001/ [Concomitant]
     Dosage: 325 MG, UNK

REACTIONS (1)
  - Therapeutic response decreased [Unknown]
